FAERS Safety Report 8009987 (Version 9)
Quarter: 2012Q4

REPORT INFORMATION
  Report Type: 
  Country: GB (occurrence: GB)
  Receive Date: 20110627
  Receipt Date: 20121218
  Transmission Date: 20130627
  Serious: Yes (Hospitalization, Other)
  Sender: FDA-Public Use
  Company Number: GB-JNJFOC-20110608634

PATIENT
  Sex: Female
  Weight: 82.56 kg

DRUGS (3)
  1. HALDOL [Suspect]
     Indication: SCHIZOPHRENIA, PARANOID TYPE
     Route: 065
     Dates: start: 201206
  2. HALDOL [Suspect]
     Indication: SCHIZOPHRENIA, PARANOID TYPE
     Route: 065
  3. HALDOL [Suspect]
     Indication: SCHIZOPHRENIA, PARANOID TYPE
     Route: 065
     Dates: start: 2000

REACTIONS (32)
  - Persecutory delusion [Unknown]
  - Hallucination, auditory [Not Recovered/Not Resolved]
  - Delusion [Unknown]
  - Suicidal ideation [Unknown]
  - Hallucination, visual [Unknown]
  - Cognitive disorder [Unknown]
  - Depression [Unknown]
  - Insomnia [Unknown]
  - Agitation [Unknown]
  - Dehydration [Unknown]
  - Diarrhoea [Unknown]
  - Myalgia [Unknown]
  - Groin pain [Unknown]
  - Restless legs syndrome [Unknown]
  - Disturbance in attention [Unknown]
  - Back pain [Unknown]
  - Hospitalisation [Unknown]
  - Blood cortisol increased [Unknown]
  - Obesity [Not Recovered/Not Resolved]
  - Apathy [Not Recovered/Not Resolved]
  - Stress [Unknown]
  - Injection site pain [Unknown]
  - Rash erythematous [Unknown]
  - Sedation [Unknown]
  - Hypersensitivity [Unknown]
  - Constipation [Unknown]
  - Drug ineffective [Unknown]
  - Irritable bowel syndrome [Unknown]
  - Headache [Unknown]
  - Rash [Unknown]
  - Incorrect drug administration rate [Unknown]
  - Treatment noncompliance [Recovering/Resolving]
